FAERS Safety Report 6359310-3 (Version None)
Quarter: 2009Q3

REPORT INFORMATION
  Report Type: 
  Country: None (occurrence: None)
  Receive Date: 20090917
  Receipt Date: 20090910
  Transmission Date: 20100115
  Serious: No
  Sender: FDA-Public Use
  Company Number: CA-ROCHE-656125

PATIENT
  Age: 31 Year
  Sex: Female

DRUGS (1)
  1. ACCUTANE [Suspect]
     Indication: DRUG USE FOR UNKNOWN INDICATION
     Route: 048
     Dates: start: 20090510, end: 20090601

REACTIONS (2)
  - NO ADVERSE EVENT [None]
  - PREGNANCY [None]
